FAERS Safety Report 21911520 (Version 1)
Quarter: 2023Q1

REPORT INFORMATION
  Report Type: Spontaneous
  Country: US (occurrence: US)
  Receive Date: 20230125
  Receipt Date: 20230125
  Transmission Date: 20230418
  Serious: No
  Sender: FDA-Public Use
  Company Number: US-ALLERGAN-2218783US

PATIENT

DRUGS (1)
  1. BOTOX COSMETIC [Suspect]
     Active Substance: ONABOTULINUMTOXINA
     Indication: Skin wrinkling
     Dosage: UNK, SINGLE

REACTIONS (5)
  - Off label use [Unknown]
  - Ocular discomfort [Not Recovered/Not Resolved]
  - Pain [Not Recovered/Not Resolved]
  - Eye swelling [Recovering/Resolving]
  - Headache [Not Recovered/Not Resolved]
